FAERS Safety Report 6253889-8 (Version None)
Quarter: 2009Q3

REPORT INFORMATION
  Report Type: 
  Country: None (occurrence: None)
  Receive Date: 20090701
  Receipt Date: 20090701
  Transmission Date: 20100115
  Serious: Yes (Hospitalization)
  Sender: FDA-Public Use
  Company Number: None

PATIENT
  Sex: Female
  Weight: 83.9154 kg

DRUGS (1)
  1. WELLBUTRIN XL [Suspect]
     Dosage: 300 MG DAILY

REACTIONS (5)
  - APATHY [None]
  - DEPRESSED MOOD [None]
  - FEELING OF DESPAIR [None]
  - IRRITABILITY [None]
  - PRODUCT SUBSTITUTION ISSUE [None]
